FAERS Safety Report 7752137-7 (Version None)
Quarter: 2011Q3

REPORT INFORMATION
  Report Type: 
  Country: None (occurrence: None)
  Receive Date: 20110915
  Receipt Date: 20110912
  Transmission Date: 20111222
  Serious: No
  Sender: FDA-Public Use
  Company Number: US-PFIZER INC-2011215056

PATIENT
  Sex: Male
  Weight: 61.224 kg

DRUGS (1)
  1. ADVIL LIQUI-GELS [Suspect]
     Indication: BACK PAIN
     Dosage: UNK, 3X/DAY
     Route: 048
     Dates: start: 20110909

REACTIONS (2)
  - ABDOMINAL DISCOMFORT [None]
  - ABDOMINAL PAIN UPPER [None]
